FAERS Safety Report 6088974-7 (Version None)
Quarter: 2009Q1

REPORT INFORMATION
  Report Type: 
  Country: None (occurrence: None)
  Receive Date: 20090224
  Receipt Date: 20090213
  Transmission Date: 20090719
  Serious: Yes (Death, Hospitalization, Other)
  Sender: FDA-Public Use
  Company Number: BE-AMGEN-UK329393

PATIENT
  Sex: Male

DRUGS (4)
  1. VECTIBIX [Suspect]
     Indication: DRUG USE FOR UNKNOWN INDICATION
     Route: 065
     Dates: start: 20090107, end: 20090121
  2. OMEPRAZOLE [Concomitant]
     Route: 048
  3. DEPRONAL [Concomitant]
     Route: 048
  4. ZOLPIDEM [Concomitant]
     Route: 048

REACTIONS (2)
  - DIZZINESS [None]
  - METASTASES TO CENTRAL NERVOUS SYSTEM [None]
